FAERS Safety Report 17452251 (Version 1)
Quarter: 2020Q1

REPORT INFORMATION
  Report Type: Spontaneous
  Country: US (occurrence: US)
  Receive Date: 20200224
  Receipt Date: 20200224
  Transmission Date: 20200409
  Serious: No
  Sender: FDA-Public Use
  Company Number: US-SHIONOGI, INC-2019001349

PATIENT
  Age: 53 Year
  Sex: Male

DRUGS (1)
  1. MULPLETA [Suspect]
     Active Substance: LUSUTROMBOPAG
     Indication: PLATELET COUNT DECREASED
     Dosage: 3 MG, QD FOR 10 DAYS
     Route: 065
     Dates: start: 20200102

REACTIONS (1)
  - Headache [Recovered/Resolved]

NARRATIVE: CASE EVENT DATE: 20200103
